FAERS Safety Report 6377867-3 (Version None)
Quarter: 2009Q3

REPORT INFORMATION
  Report Type: 
  Country: None (occurrence: None)
  Receive Date: 20090921
  Receipt Date: 20090909
  Transmission Date: 20100115
  Serious: Yes (Other)
  Sender: FDA-Public Use
  Company Number: TPA2009A02632

PATIENT
  Age: 69 Year
  Sex: Female
  Weight: 108.8633 kg

DRUGS (5)
  1. PREVACID [Suspect]
     Indication: GASTROOESOPHAGEAL REFLUX DISEASE
     Dosage: 30 MG, 1 IN 1 D, PER ORAL
     Route: 048
  2. CONTAC (CHLORPHENAMINE MALEATE, PHENYLPROPANOLAMINE HYDROCHLORIDE) [Concomitant]
  3. LIPITOR [Concomitant]
  4. VYTORIN [Concomitant]
  5. VITAMIN D [Concomitant]

REACTIONS (1)
  - BREAST CANCER [None]
